FAERS Safety Report 13894820 (Version 2)
Quarter: 2017Q3

REPORT INFORMATION
  Report Type: Spontaneous
  Country: FR (occurrence: FR)
  Receive Date: 20170823
  Receipt Date: 20170828
  Transmission Date: 20171127
  Serious: Yes (Hospitalization)
  Sender: FDA-Public Use
  Company Number: FR-ASTRAZENECA-2017SE85610

PATIENT
  Age: 26353 Day
  Sex: Female

DRUGS (15)
  1. ZYMAD [Concomitant]
     Active Substance: CHOLECALCIFEROL
  2. KARDEGIC [Concomitant]
     Active Substance: ASPIRIN LYSINE
  3. SOLU-MEDROL [Suspect]
     Active Substance: METHYLPREDNISOLONE SODIUM SUCCINATE
     Indication: RENAL TRANSPLANT
     Dosage: 20.0MG/KG UNKNOWN
     Route: 042
     Dates: start: 20170625, end: 20170625
  4. TAHOR [Suspect]
     Active Substance: ATORVASTATIN CALCIUM
     Route: 048
  5. SOLU-MEDROL [Suspect]
     Active Substance: METHYLPREDNISOLONE SODIUM SUCCINATE
     Indication: RENAL TRANSPLANT
     Dosage: 5.0MG/KG UNKNOWN
     Route: 042
     Dates: start: 20170623, end: 20170623
  6. LASILIX SPECIAL [Concomitant]
     Active Substance: FUROSEMIDE
  7. SOLU-MEDROL [Suspect]
     Active Substance: METHYLPREDNISOLONE SODIUM SUCCINATE
     Indication: RENAL TRANSPLANT
     Dosage: 2.0MG/KG UNKNOWN
     Route: 042
     Dates: start: 20170624, end: 20170624
  8. LANTUS [Concomitant]
     Active Substance: INSULIN GLARGINE
  9. NOVONORM [Concomitant]
     Active Substance: REPAGLINIDE
  10. GLYCEROL\PARAFFIN [Concomitant]
     Active Substance: GLYCERIN\PARAFFIN
  11. CARDENSIEL [Concomitant]
     Active Substance: BISOPROLOL FUMARATE
  12. INEXIUM [Suspect]
     Active Substance: ESOMEPRAZOLE
     Route: 048
  13. SOLU-MEDROL [Suspect]
     Active Substance: METHYLPREDNISOLONE SODIUM SUCCINATE
     Indication: RENAL TRANSPLANT
     Dosage: 10.0MG/KG UNKNOWN
     Route: 042
     Dates: start: 20170622, end: 20170622
  14. SOLU-MEDROL [Suspect]
     Active Substance: METHYLPREDNISOLONE SODIUM SUCCINATE
     Indication: RENAL TRANSPLANT
     Dosage: 10.0MG/KG UNKNOWN
     Route: 042
     Dates: start: 20170626, end: 20170626
  15. FOSRENOL [Concomitant]
     Active Substance: LANTHANUM CARBONATE

REACTIONS (2)
  - Cholestasis [Recovering/Resolving]
  - Hepatocellular injury [Recovering/Resolving]

NARRATIVE: CASE EVENT DATE: 20170623
